FAERS Safety Report 17373626 (Version 1)
Quarter: 2020Q1

REPORT INFORMATION
  Report Type: Spontaneous
  Country: US (occurrence: US)
  Receive Date: 20200206
  Receipt Date: 20200206
  Transmission Date: 20200409
  Serious: Yes (Death, Hospitalization)
  Sender: FDA-Public Use
  Company Number: US-ALVOGEN-2020-ALVOGEN-102727

PATIENT
  Age: 39 Year
  Sex: Male

DRUGS (1)
  1. BUPROPION. [Suspect]
     Active Substance: BUPROPION
     Indication: SUICIDE ATTEMPT
     Dosage: APPROXIMATELY 46 BUPROPION TABLETS
     Route: 048

REACTIONS (4)
  - Completed suicide [Fatal]
  - Arrhythmia [Fatal]
  - Cardiac arrest [Fatal]
  - Brain injury [Fatal]
